FAERS Safety Report 7037482-5 (Version None)
Quarter: 2010Q4

REPORT INFORMATION
  Report Type: 
  Country: None (occurrence: None)
  Receive Date: 20101011
  Receipt Date: 20101005
  Transmission Date: 20110411
  Serious: Yes (Death)
  Sender: FDA-Public Use
  Company Number: A0882388A

PATIENT
  Sex: Female

DRUGS (1)
  1. PROMACTA [Suspect]
     Dosage: 25MG PER DAY
     Dates: start: 20090501

REACTIONS (1)
  - DEATH [None]
